FAERS Safety Report 6110995-6 (Version None)
Quarter: 2009Q1

REPORT INFORMATION
  Report Type: 
  Country: None (occurrence: None)
  Receive Date: 20090311
  Receipt Date: 20090226
  Transmission Date: 20090719
  Serious: Yes (Hospitalization, Other)
  Sender: FDA-Public Use
  Company Number: US-ROCHE-609396

PATIENT
  Sex: Female

DRUGS (22)
  1. PEGASYS [Suspect]
     Indication: HEPATITIS C
     Dosage: FORM: PRE FILLED SYRINGE
     Route: 058
     Dates: start: 20081001, end: 20090121
  2. RIBAVIRIN [Suspect]
     Indication: HEPATITIS C
     Route: 048
     Dates: start: 20081001, end: 20090121
  3. INSULIN [Concomitant]
  4. LASIX [Concomitant]
  5. ALDACTONE [Concomitant]
  6. LEVOXYL [Concomitant]
  7. VICODIN [Concomitant]
  8. CORGARD [Concomitant]
  9. SEROQUEL [Concomitant]
  10. ASPIRIN [Concomitant]
  11. AMLODIPINE [Concomitant]
  12. SELEXID [Concomitant]
  13. SELEXID [Concomitant]
  14. NADOLOL [Concomitant]
  15. SYNTHROID [Concomitant]
  16. PLAVIX [Concomitant]
  17. ASPIRIN [Concomitant]
  18. NORVASC [Concomitant]
  19. NEURONTIN [Concomitant]
  20. CELEXA [Concomitant]
  21. DETROL LA [Concomitant]
  22. ADVAIR HFA [Concomitant]

REACTIONS (3)
  - ANAEMIA [None]
  - ARTERIAL STENOSIS [None]
  - PERIPHERAL ISCHAEMIA [None]
